FAERS Safety Report 4562920-7 (Version None)
Quarter: 2005Q1

REPORT INFORMATION
  Report Type: 
  Country: None (occurrence: None)
  Receive Date: 20050125
  Receipt Date: 20050112
  Transmission Date: 20050727
  Serious: Yes (Hospitalization, Other)
  Sender: FDA-Public Use
  Company Number: 2005009537

PATIENT
  Age: 72 Year
  Sex: Female

DRUGS (12)
  1. PREDNISOLONE [Suspect]
     Indication: ARTHRITIS
     Dosage: 15 MG (15 MG, 1 IN 1 D), ORAL
     Route: 048
  2. ASPIRIN [Suspect]
     Indication: PROPHYLAXIS
     Dosage: 75 MG (75 MG, 1 IN 1 D), ORAL
     Route: 048
  3. FORMOTEROL (FORMOTEROL) [Concomitant]
  4. ALENDRONATE SODIUM [Concomitant]
  5. STERCULIA (STERCULIA) [Concomitant]
  6. HEPARINOID (HEPARINOID) [Concomitant]
  7. ACETAMINOPHEN [Concomitant]
  8. NITROGLYCERIN [Concomitant]
  9. BUDESONIDE (BUDESONIDE) [Concomitant]
  10. ISOSORBIDE MONONITRATE [Concomitant]
  11. ACETYLCYSTEINE [Concomitant]
  12. LEKOVIT CA (CALCIUM CARBONATE, COLECALCIFEROL) [Concomitant]

REACTIONS (7)
  - ABDOMINAL PAIN [None]
  - ALANINE AMINOTRANSFERASE INCREASED [None]
  - BLOOD ALKALINE PHOSPHATASE INCREASED [None]
  - FATIGUE [None]
  - GASTRIC ULCER [None]
  - HIATUS HERNIA [None]
  - LIVER FUNCTION TEST ABNORMAL [None]
